FAERS Safety Report 20539298 (Version 1)
Quarter: 2022Q1

REPORT INFORMATION
  Report Type: Report from Study
  Country: IE (occurrence: IE)
  Receive Date: 20220302
  Receipt Date: 20220302
  Transmission Date: 20220424
  Serious: Yes (Hospitalization)
  Sender: FDA-Public Use
  Company Number: IE-JNJFOC-20210942400

PATIENT
  Age: 53 Year
  Sex: Female

DRUGS (5)
  1. STELARA [Suspect]
     Active Substance: USTEKINUMAB
     Indication: Crohn^s disease
     Route: 042
     Dates: start: 20210727
  2. STELARA [Suspect]
     Active Substance: USTEKINUMAB
     Route: 058
  3. LANSOPRAZOLE [Concomitant]
     Active Substance: LANSOPRAZOLE
     Route: 050
  4. SULFASALAZINE [Concomitant]
     Active Substance: SULFASALAZINE
     Route: 050
  5. PREDNISOLONE [Concomitant]
     Active Substance: PREDNISOLONE
     Route: 050

REACTIONS (3)
  - Cholecystectomy [Recovered/Resolved]
  - Postoperative wound infection [Recovering/Resolving]
  - Crohn^s disease [Recovering/Resolving]

NARRATIVE: CASE EVENT DATE: 20210801
